FAERS Safety Report 7429807-3 (Version None)
Quarter: 2011Q2

REPORT INFORMATION
  Report Type: 
  Country: None (occurrence: None)
  Receive Date: 20110421
  Receipt Date: 20110413
  Transmission Date: 20111010
  Serious: Yes (Hospitalization)
  Sender: FDA-Public Use
  Company Number: US-MERCK-1101USA00791

PATIENT
  Age: 67 Year
  Sex: Female
  Weight: 68 kg

DRUGS (4)
  1. DESMOPRESSIN [Concomitant]
     Route: 065
  2. LEVOTHYROXINE SODIUM [Concomitant]
     Route: 048
  3. ZETIA [Suspect]
     Route: 048
     Dates: end: 20101216
  4. ATENOLOL [Concomitant]
     Route: 065

REACTIONS (26)
  - ADVERSE DRUG REACTION [None]
  - ARTHRALGIA [None]
  - MYALGIA [None]
  - OSTEOPOROSIS [None]
  - HEART RATE IRREGULAR [None]
  - HYPERTENSION [None]
  - LOW DENSITY LIPOPROTEIN INCREASED [None]
  - MITOCHONDRIAL MYOPATHY [None]
  - FATIGUE [None]
  - DIABETES INSIPIDUS [None]
  - DYSPEPSIA [None]
  - EYE DISORDER [None]
  - POLLAKIURIA [None]
  - ANXIETY [None]
  - HYPOPITUITARISM [None]
  - PULSE PRESSURE ABNORMAL [None]
  - BLOOD PRESSURE SYSTOLIC INCREASED [None]
  - DEPRESSED MOOD [None]
  - HYPERLIPIDAEMIA [None]
  - RATHKE'S CLEFT CYST [None]
  - VISION BLURRED [None]
  - ASTHENIA [None]
  - TEMPERATURE INTOLERANCE [None]
  - GAIT DISTURBANCE [None]
  - DIZZINESS [None]
  - HEART RATE DECREASED [None]
